FAERS Safety Report 7093153-0 (Version None)
Quarter: 2010Q4

REPORT INFORMATION
  Report Type: 
  Country: None (occurrence: None)
  Receive Date: 20101110
  Receipt Date: 20090609
  Transmission Date: 20110411
  Serious: No
  Sender: FDA-Public Use
  Company Number: US-KINGPHARMUSA00001-K200900701

PATIENT
  Sex: Female
  Weight: 86.168 kg

DRUGS (5)
  1. FLECTOR [Suspect]
     Indication: ARTHRITIS
     Dosage: 1 PATCH, BID
     Route: 061
     Dates: start: 20090501
  2. ANTIHYPERTENSIVES [Concomitant]
     Indication: HYPERTENSION
     Dosage: UNK
  3. LIBRIUM [Concomitant]
     Indication: NERVOUSNESS
     Dosage: UNK
  4. ELAVIL [Concomitant]
     Indication: ANXIETY
     Dosage: UNK
  5. LORTAB [Concomitant]
     Dosage: 10 MG, PRN

REACTIONS (1)
  - ULCER [None]
